FAERS Safety Report 5932111-3 (Version None)
Quarter: 2008Q4

REPORT INFORMATION
  Report Type: 
  Country: None (occurrence: None)
  Receive Date: 20081027
  Receipt Date: 20081027
  Transmission Date: 20090506
  Serious: Yes (Other)
  Sender: FDA-Public Use
  Company Number: None

PATIENT
  Age: 77 Year
  Sex: Female
  Weight: 74.8435 kg

DRUGS (1)
  1. ELAVIL [Suspect]
     Indication: SLEEP DISORDER THERAPY
     Dosage: 10MG QHS PO
     Route: 048
     Dates: start: 20080908, end: 20081008

REACTIONS (3)
  - DRUG DISPENSING ERROR [None]
  - DRY MOUTH [None]
  - INCORRECT DOSE ADMINISTERED [None]
